FAERS Safety Report 9388301 (Version 2)
Quarter: 2013Q3

REPORT INFORMATION
  Report Type: Spontaneous
  Country: US (occurrence: US)
  Receive Date: 20130708
  Receipt Date: 20130816
  Transmission Date: 20140515
  Serious: No
  Sender: FDA-Public Use
  Company Number: US-PFIZER INC-2013200259

PATIENT
  Age: 75 Year
  Sex: Female
  Weight: 58.05 kg

DRUGS (1)
  1. ALAVERT [Suspect]
     Indication: HYPERSENSITIVITY
     Dosage: UNK, DAILY
     Dates: end: 2013

REACTIONS (2)
  - Drug ineffective [Unknown]
  - Eye pruritus [Unknown]
